FAERS Safety Report 9282835 (Version 1)
Quarter: 2013Q2

REPORT INFORMATION
  Report Type: Spontaneous
  Country: US (occurrence: US)
  Receive Date: 20130510
  Receipt Date: 20130510
  Transmission Date: 20140414
  Serious: Yes (Hospitalization)
  Sender: FDA-Public Use
  Company Number: US-PFIZER INC-2013140556

PATIENT
  Age: 18 Year
  Sex: Female
  Weight: 10.88 kg

DRUGS (1)
  1. DEPO-PROVERA [Suspect]
     Indication: CONTRACEPTION
     Dosage: 150 MG/ML, EVERY 3 MONTHS
     Route: 030
     Dates: start: 20120725, end: 20130111

REACTIONS (6)
  - Chest pain [Recovering/Resolving]
  - Flushing [Recovering/Resolving]
  - Wheezing [Recovering/Resolving]
  - Pruritus [Recovering/Resolving]
  - Dyspnoea [Recovering/Resolving]
  - Pruritus [Recovered/Resolved]
